FAERS Safety Report 9942451 (Version 2)
Quarter: 2014Q1

REPORT INFORMATION
  Report Type: Spontaneous
  Country: US (occurrence: US)
  Receive Date: 20140303
  Receipt Date: 20140310
  Transmission Date: 20141002
  Serious: No
  Sender: FDA-Public Use
  Company Number: US-PFIZER INC-2014055936

PATIENT
  Sex: Male

DRUGS (6)
  1. LIPITOR [Suspect]
     Dosage: UNK
  2. SIMVASTATIN [Suspect]
     Dosage: UNK
  3. FLEXERIL [Suspect]
     Dosage: UNK
  4. PRAVASTATIN [Suspect]
     Dosage: UNK
  5. ASPIRIN [Suspect]
     Dosage: UNK
  6. CRESTOR [Suspect]
     Dosage: UNK

REACTIONS (1)
  - Drug hypersensitivity [Unknown]
